FAERS Safety Report 7868011-1 (Version None)
Quarter: 2011Q4

REPORT INFORMATION
  Report Type: 
  Country: None (occurrence: None)
  Receive Date: 20111028
  Receipt Date: 20111017
  Transmission Date: 20120403
  Serious: Yes (Hospitalization)
  Sender: FDA-Public Use
  Company Number: BR-MEDIMMUNE-MEDI-0013773

PATIENT
  Sex: Female
  Weight: 7.05 kg

DRUGS (1)
  1. SYNAGIS [Suspect]
     Indication: BRONCHOPULMONARY DYSPLASIA
     Route: 030

REACTIONS (8)
  - INCREASED BRONCHIAL SECRETION [None]
  - FEELING ABNORMAL [None]
  - PNEUMONIA [None]
  - PYREXIA [None]
  - COUGH [None]
  - BRONCHOSPASM [None]
  - DYSPNOEA [None]
  - FATIGUE [None]
